FAERS Safety Report 4465770-5 (Version None)
Quarter: 2004Q4

REPORT INFORMATION
  Report Type: 
  Country: None (occurrence: None)
  Receive Date: 20041001
  Receipt Date: 20041001
  Transmission Date: 20050328
  Serious: Yes (Hospitalization, Other)
  Sender: FDA-Public Use
  Company Number: None

PATIENT
  Age: 83 Year
  Sex: Female

DRUGS (7)
  1. CHLORPHENIRAMINE TAB [Suspect]
     Indication: INFLUENZA LIKE ILLNESS
     Dosage: 4 MG QD ORAL
     Route: 048
  2. ACETAMINOPHEN [Suspect]
     Indication: INFLUENZA LIKE ILLNESS
     Dosage: 600 MG QD ORAL
     Route: 048
  3. METFORMIN [Concomitant]
  4. GLIMEPIRIDE [Concomitant]
  5. ASPIRIN [Concomitant]
  6. NITROGLYCERIN [Concomitant]
  7. NIFEDIPINE [Concomitant]

REACTIONS (5)
  - ANAEMIA [None]
  - BLOOD DISORDER [None]
  - COAGULATION FACTOR VIII LEVEL ABNORMAL [None]
  - FACTOR VIII INHIBITION [None]
  - HAEMORRHAGE [None]
